FAERS Safety Report 4598696-7 (Version None)
Quarter: 2005Q1

REPORT INFORMATION
  Report Type: 
  Country: None (occurrence: None)
  Receive Date: 20050302
  Receipt Date: 20050302
  Transmission Date: 20050727
  Serious: Yes (Death)
  Sender: FDA-Public Use
  Company Number: None

PATIENT
  Age: 87 Year
  Sex: Male
  Weight: 85.2762 kg

DRUGS (2)
  1. TOBRAMYCIN [Suspect]
     Indication: COMPRESSION FRACTURE
     Dosage: FULL ONE TIME INTRADISCA
     Route: 024
     Dates: start: 20041203, end: 20041203
  2. TOBRAMYCIN [Suspect]
     Indication: INTERVERTEBRAL DISC DISORDER
     Dosage: FULL ONE TIME INTRADISCA
     Route: 024
     Dates: start: 20041203, end: 20041203

REACTIONS (4)
  - BLOOD PRESSURE DECREASED [None]
  - HEART RATE DECREASED [None]
  - OXYGEN SATURATION DECREASED [None]
  - POST PROCEDURAL COMPLICATION [None]
